FAERS Safety Report 5220635-6 (Version None)
Quarter: 2007Q1

REPORT INFORMATION
  Report Type: 
  Country: None (occurrence: None)
  Receive Date: 20070125
  Receipt Date: 20070125
  Transmission Date: 20070707
  Serious: Yes (Hospitalization)
  Sender: FDA-Public Use
  Company Number: None

PATIENT
  Sex: Female
  Weight: 107.9561 kg

DRUGS (8)
  1. DILAUDID [Suspect]
     Indication: PAIN MANAGEMENT
     Dosage: 2 MG IM Q4H PRN
     Route: 030
     Dates: start: 20051226
  2. CAPOTEN [Concomitant]
  3. LEVAQUIN [Concomitant]
  4. LASIX [Concomitant]
  5. SYNTHROID [Concomitant]
  6. TYLENOL [Concomitant]
  7. TIGAN [Concomitant]
  8. INSULIN [Concomitant]

REACTIONS (3)
  - LETHARGY [None]
  - RESPIRATORY DEPRESSION [None]
  - UNRESPONSIVE TO STIMULI [None]
